FAERS Safety Report 13926185 (Version 1)
Quarter: 2017Q3

REPORT INFORMATION
  Report Type: Spontaneous
  Country: FR (occurrence: FR)
  Receive Date: 20170831
  Receipt Date: 20170831
  Transmission Date: 20171127
  Serious: Yes (Hospitalization)
  Sender: FDA-Public Use
  Company Number: FR-PFIZER INC-2017372990

PATIENT
  Age: 52 Year
  Sex: Female

DRUGS (7)
  1. PRODILANTIN [Suspect]
     Active Substance: FOSPHENYTOIN SODIUM
     Dosage: 400 MG, 2X/DAY
     Route: 042
     Dates: start: 201707
  2. DIHYDAN [Concomitant]
     Active Substance: PHENYTOIN
     Indication: EPILEPSY
     Dosage: 200 MG, 2X/DAY
     Route: 048
     Dates: start: 20170728
  3. KEPPRA [Concomitant]
     Active Substance: LEVETIRACETAM
     Dosage: 2000 MG, DAILY
  4. KEPPRA [Concomitant]
     Active Substance: LEVETIRACETAM
     Dosage: 2000 MG, DAILY
     Route: 048
     Dates: start: 20170728
  5. DIHYDAN [Concomitant]
     Active Substance: PHENYTOIN
     Dosage: UNK
     Route: 048
     Dates: start: 20170805, end: 20170807
  6. KEPPRA [Concomitant]
     Active Substance: LEVETIRACETAM
     Dosage: 2500 MG, DAILY
     Route: 042
     Dates: start: 20170724
  7. PRODILANTIN [Suspect]
     Active Substance: FOSPHENYTOIN SODIUM
     Indication: EPILEPSY
     Dosage: 1200 MG, SINGLE AS LOADING DOSE
     Route: 042
     Dates: start: 20170725

REACTIONS (9)
  - Leukopenia [Recovered/Resolved]
  - Abdominal pain [Recovered/Resolved]
  - Diarrhoea [Recovered/Resolved]
  - Erythema [Recovered/Resolved]
  - Rash maculo-papular [Recovered/Resolved]
  - Pyrexia [Recovered/Resolved]
  - Hypersensitivity [Recovering/Resolving]
  - Lymphopenia [Recovered/Resolved]
  - Liver function test abnormal [Unknown]

NARRATIVE: CASE EVENT DATE: 20170804
